FAERS Safety Report 8439478-5 (Version None)
Quarter: 2012Q2

REPORT INFORMATION
  Report Type: 
  Country: None (occurrence: None)
  Receive Date: 20120608
  Receipt Date: 20120525
  Transmission Date: 20120825
  Serious: Yes (Hospitalization)
  Sender: FDA-Public Use
  Company Number: US-2012-10666

PATIENT
  Age: 42 Year
  Sex: Female

DRUGS (1)
  1. BUSULFAN [Suspect]
     Dosage: 190 MG+NSS 500 ML IV DRIP IN 4 HR. IV DRIP
     Route: 041
     Dates: start: 20110425, end: 20110428

REACTIONS (1)
  - HALLUCINATION, AUDITORY [None]
